FAERS Safety Report 5614536-9 (Version None)
Quarter: 2008Q1

REPORT INFORMATION
  Report Type: 
  Country: None (occurrence: None)
  Receive Date: 20080205
  Receipt Date: 20080122
  Transmission Date: 20080703
  Serious: No
  Sender: FDA-Public Use
  Company Number: US-BOEHRINGER INGELHEIM GMBH, GERMANY-2008-BP-01022BP

PATIENT
  Sex: Male

DRUGS (2)
  1. SPIRIVA [Suspect]
     Indication: FIBROSIS
     Route: 055
     Dates: start: 20080108
  2. ADVAIR DISKUS 100/50 [Concomitant]
     Indication: FIBROSIS

REACTIONS (1)
  - DRUG INEFFECTIVE [None]
